FAERS Safety Report 6604333-X (Version None)
Quarter: 2010Q1

REPORT INFORMATION
  Report Type: 
  Country: None (occurrence: None)
  Receive Date: 20100226
  Receipt Date: 20090818
  Transmission Date: 20100710
  Serious: No
  Sender: FDA-Public Use
  Company Number: A0803867A

PATIENT
  Age: 41 Year
  Sex: Female

DRUGS (7)
  1. LAMICTAL CD [Suspect]
     Indication: TRAUMATIC BRAIN INJURY
     Dosage: 100MG PER DAY
     Route: 048
     Dates: start: 20090630, end: 20090805
  2. LAMOTRIGINE [Suspect]
     Indication: TRAUMATIC BRAIN INJURY
     Dosage: 100MG PER DAY
     Route: 048
     Dates: start: 20090805, end: 20090808
  3. NORCO [Concomitant]
  4. MIRTAZAPINE [Concomitant]
  5. AMBIEN [Concomitant]
  6. TOPAMAX [Concomitant]
     Indication: MIGRAINE
  7. MOTRIN [Concomitant]

REACTIONS (3)
  - INFLUENZA LIKE ILLNESS [None]
  - PRURITUS [None]
  - RASH [None]
